FAERS Safety Report 7141412-5 (Version None)
Quarter: 2010Q4

REPORT INFORMATION
  Report Type: 
  Country: None (occurrence: None)
  Receive Date: 20101122
  Receipt Date: 20100901
  Transmission Date: 20110411
  Serious: Yes (Hospitalization, Other)
  Sender: FDA-Public Use
  Company Number: BE-ACCORD-005994

PATIENT
  Age: 66 Year
  Sex: Female

DRUGS (3)
  1. MYCOPHENOLATE MOFETIL [Suspect]
     Indication: HEART TRANSPLANT
  2. EVEROLIMUS [Suspect]
     Indication: HEART TRANSPLANT
  3. CORTICOSTEROIDS [Concomitant]

REACTIONS (11)
  - ANAL ULCER [None]
  - APHTHOUS STOMATITIS [None]
  - BLOOD ALBUMIN DECREASED [None]
  - CACHEXIA [None]
  - HEART TRANSPLANT REJECTION [None]
  - INFLAMMATION [None]
  - MALNUTRITION [None]
  - ODYNOPHAGIA [None]
  - PAIN [None]
  - RENAL IMPAIRMENT [None]
  - WEIGHT DECREASED [None]
